FAERS Safety Report 6489874-0 (Version None)
Quarter: 2009Q4

REPORT INFORMATION
  Report Type: 
  Country: None (occurrence: None)
  Receive Date: 20091211
  Receipt Date: 20091201
  Transmission Date: 20100525
  Serious: Yes (Other)
  Sender: FDA-Public Use
  Company Number: US-RB-026599-09

PATIENT
  Age: 67 Year
  Sex: Male

DRUGS (4)
  1. MUCINEX D MAXIMUM STRENGTH [Suspect]
     Indication: COUGH
     Dosage: TOOK 2 TABLETS OF PRODUCT 8 HOURS AFTER TAKING 2 TABLETS OF MUCINEX DM
     Route: 048
     Dates: start: 20091129
  2. MUCINEX DM [Concomitant]
     Indication: COUGH
     Dosage: TOOK 2 TABLETS OF MUCINEX DM
     Route: 048
     Dates: start: 20091129
  3. ASPIRIN [Concomitant]
  4. NEXIUM [Concomitant]

REACTIONS (8)
  - ACCIDENTAL OVERDOSE [None]
  - BLOOD PRESSURE INCREASED [None]
  - EXTRASYSTOLES [None]
  - HEART RATE INCREASED [None]
  - INAPPROPRIATE SCHEDULE OF DRUG ADMINISTRATION [None]
  - INSOMNIA [None]
  - PALPITATIONS [None]
  - TACHYCARDIA [None]
